FAERS Safety Report 20132662 (Version 1)
Quarter: 2021Q4

REPORT INFORMATION
  Report Type: Spontaneous
  Country: US (occurrence: US)
  Receive Date: 20211130
  Receipt Date: 20211130
  Transmission Date: 20220303
  Serious: Yes (Other)
  Sender: FDA-Public Use
  Company Number: US-NOVARTISPH-NVSC2021US268973

PATIENT
  Age: 40 Year
  Sex: Female

DRUGS (6)
  1. RANITIDINE [Suspect]
     Active Substance: RANITIDINE
     Indication: Gastrooesophageal reflux disease
     Dosage: 150 MG, QD
     Route: 065
     Dates: start: 200101, end: 201104
  2. RANITIDINE [Suspect]
     Active Substance: RANITIDINE
     Indication: Back pain
  3. RANITIDINE [Suspect]
     Active Substance: RANITIDINE
     Indication: Flank pain
  4. RANITIDINE [Suspect]
     Active Substance: RANITIDINE
     Indication: Gastrooesophageal reflux disease
     Dosage: 150 MG, QD
     Route: 065
     Dates: start: 200101, end: 201104
  5. RANITIDINE [Suspect]
     Active Substance: RANITIDINE
     Indication: Back pain
  6. RANITIDINE [Suspect]
     Active Substance: RANITIDINE
     Indication: Flank pain

REACTIONS (3)
  - Renal cancer stage I [Unknown]
  - Product use in unapproved indication [Unknown]
  - Incorrect dose administered [Unknown]

NARRATIVE: CASE EVENT DATE: 20050101
